FAERS Safety Report 4991440-0 (Version None)
Quarter: 2006Q2

REPORT INFORMATION
  Report Type: 
  Country: None (occurrence: None)
  Receive Date: 20060504
  Receipt Date: 20060428
  Transmission Date: 20061013
  Serious: Yes (Death)
  Sender: FDA-Public Use
  Company Number: 2006AP02003

PATIENT
  Age: 82 Year
  Sex: Female

DRUGS (6)
  1. ARIMIDEX [Suspect]
     Indication: BREAST CANCER
     Route: 048
     Dates: start: 20051201
  2. RADIOTHERAPY [Suspect]
     Indication: BREAST CANCER
     Dates: start: 20051201
  3. TAXOTERE [Suspect]
     Indication: CHEMOTHERAPY
     Dates: start: 20051001
  4. CYCLOPHOSPHAMIDE [Suspect]
     Indication: CHEMOTHERAPY
     Dates: start: 20051001
  5. EPIRUBICIN [Suspect]
     Indication: CHEMOTHERAPY
     Dates: start: 20051001
  6. FLUOROURACIL [Suspect]
     Indication: CHEMOTHERAPY
     Dates: start: 20051001

REACTIONS (1)
  - DEATH [None]
